FAERS Safety Report 4851779-6 (Version None)
Quarter: 2005Q4

REPORT INFORMATION
  Report Type: 
  Country: None (occurrence: None)
  Receive Date: 20051209
  Receipt Date: 20051209
  Transmission Date: 20060501
  Serious: No
  Sender: FDA-Public Use
  Company Number: None

PATIENT
  Sex: Female
  Weight: 57.1532 kg

DRUGS (2)
  1. NORTRIPTYLINE GENERY 10 MG [Suspect]
     Indication: DEPRESSION
     Dosage: 10 MG ORAL
     Route: 048
  2. NORTRIPTYLINE GENERY 25  MG [Suspect]
     Indication: INSOMNIA
     Dosage: 25 MG ORAL
     Route: 048

REACTIONS (2)
  - DRUG INEFFECTIVE [None]
  - PHARMACEUTICAL PRODUCT COMPLAINT [None]
